FAERS Safety Report 7217248-3 (Version None)
Quarter: 2010Q4

REPORT INFORMATION
  Report Type: 
  Country: None (occurrence: None)
  Receive Date: 20101227
  Receipt Date: 20101216
  Transmission Date: 20110411
  Serious: Yes (Death)
  Sender: FDA-Public Use
  Company Number: TR-JNJFOC-20101206233

PATIENT
  Age: 70 Year
  Sex: Male

DRUGS (1)
  1. DACOGEN [Suspect]
     Indication: MYELODYSPLASTIC SYNDROME
     Dosage: IN 1 CYCLICAL, INTRAVENOUS
     Route: 042
     Dates: start: 20100101, end: 20100101

REACTIONS (3)
  - HAEMATOMA [None]
  - PLATELET COUNT DECREASED [None]
  - SPEECH DISORDER [None]
